FAERS Safety Report 24708834 (Version 1)
Quarter: 2024Q4

REPORT INFORMATION
  Report Type: Report from Study
  Country: CO (occurrence: CO)
  Receive Date: 20241207
  Receipt Date: 20241207
  Transmission Date: 20250114
  Serious: Yes (Death, Hospitalization, Other)
  Sender: ALEXION PHARMACEUTICALS
  Company Number: CO-AstraZeneca-CH-00760595A

PATIENT
  Age: 97 Year

DRUGS (4)
  1. SODIUM ZIRCONIUM CYCLOSILICATE [Suspect]
     Active Substance: SODIUM ZIRCONIUM CYCLOSILICATE
     Indication: Hyperkalaemia
     Dosage: 5 GRAM, QD
  2. SODIUM ZIRCONIUM CYCLOSILICATE [Suspect]
     Active Substance: SODIUM ZIRCONIUM CYCLOSILICATE
     Dosage: 5 GRAM, QD
     Route: 048
  3. SODIUM ZIRCONIUM CYCLOSILICATE [Suspect]
     Active Substance: SODIUM ZIRCONIUM CYCLOSILICATE
     Dosage: 5 GRAM, QD
  4. SODIUM ZIRCONIUM CYCLOSILICATE [Suspect]
     Active Substance: SODIUM ZIRCONIUM CYCLOSILICATE
     Dosage: 5 GRAM, QD
     Route: 048

REACTIONS (1)
  - Respiratory distress [Fatal]
